FAERS Safety Report 5191770-6 (Version None)
Quarter: 2006Q4

REPORT INFORMATION
  Report Type: 
  Country: None (occurrence: None)
  Receive Date: 20061219
  Receipt Date: 20061205
  Transmission Date: 20070319
  Serious: Yes (Other)
  Sender: FDA-Public Use
  Company Number: BR-2006-027258

PATIENT
  Age: 33 Year
  Sex: Female

DRUGS (1)
  1. MIRENA [Suspect]
     Indication: CONTRACEPTION
     Dosage: 20 UG/DAY, CONT, INTRA-UTERINE
     Route: 015
     Dates: start: 20060520

REACTIONS (4)
  - CONTRACEPTIVE DEVICE COMPLICATION [None]
  - MENOMETRORRHAGIA [None]
  - PELVIC PAIN [None]
  - UTERINE POLYPECTOMY [None]
